FAERS Safety Report 25654802 (Version 2)
Quarter: 2025Q3

REPORT INFORMATION
  Report Type: Spontaneous
  Country: US (occurrence: US)
  Receive Date: 20250807
  Receipt Date: 20250808
  Transmission Date: 20251021
  Serious: Yes (Other)
  Sender: ABBVIE
  Company Number: US-ABBVIE-6401818

PATIENT
  Age: 38 Year
  Sex: Female
  Weight: 82 kg

DRUGS (6)
  1. LILETTA [Suspect]
     Active Substance: LEVONORGESTREL
     Indication: Product used for unknown indication
     Route: 015
     Dates: start: 20250509
  2. ATORVASTATIN [Concomitant]
     Active Substance: ATORVASTATIN
     Indication: Product used for unknown indication
     Dosage: TAKE 1 TABLET BY MOUTH AT BEDTIME
     Route: 048
     Dates: start: 20250513
  3. LEVOTHYROXINE [Concomitant]
     Active Substance: LEVOTHYROXINE
     Indication: Product used for unknown indication
     Dates: start: 20240717
  4. LEVOTHYROXINE [Concomitant]
     Active Substance: LEVOTHYROXINE
     Indication: Product used for unknown indication
     Dosage: TAKE 1 TABLET BY MOUTH EVERY DAY
     Route: 048
     Dates: start: 20250522
  5. Taron C Dha [Concomitant]
     Indication: Product used for unknown indication
     Dosage: TARON-C DHA 35 MG-1 MG-200 MG CAPSULE?TAKE ONE CAPSULE(S) EVERY DAY BY ORAL ROUTE FOR 30 DAYS.
     Route: 048
     Dates: start: 20240717
  6. TRANEXAMIC ACID [Concomitant]
     Active Substance: TRANEXAMIC ACID
     Indication: Product used for unknown indication
     Route: 048
     Dates: start: 20250613

REACTIONS (6)
  - Abnormal uterine bleeding [Unknown]
  - Device expulsion [Unknown]
  - Post procedural haemorrhage [Unknown]
  - Uterine leiomyoma [Unknown]
  - Device issue [Unknown]
  - Complication associated with device [Unknown]

NARRATIVE: CASE EVENT DATE: 20250101
